FAERS Safety Report 6042374-4 (Version None)
Quarter: 2009Q1

REPORT INFORMATION
  Report Type: 
  Country: None (occurrence: None)
  Receive Date: 20090116
  Receipt Date: 20090105
  Transmission Date: 20090719
  Serious: Yes (Hospitalization, Other)
  Sender: FDA-Public Use
  Company Number: US-PFIZER INC-2008150297

PATIENT
  Sex: Male
  Weight: 78.277 kg

DRUGS (11)
  1. BLINDED *PLACEBO [Suspect]
     Indication: CARDIAC FAILURE
     Dosage: UNK
     Route: 048
     Dates: start: 20081111, end: 20081126
  2. EPLERENONE [Suspect]
     Indication: CARDIAC FAILURE
     Dosage: UNK
     Route: 048
     Dates: start: 20081111, end: 20081126
  3. ALLOPURINOL [Suspect]
     Dosage: 100 MG, 2X/DAY
     Route: 048
     Dates: start: 20030712
  4. COREG [Concomitant]
     Dosage: 25 MG, 2X/DAY
     Route: 048
     Dates: start: 20030717
  5. FUROSEMIDE [Concomitant]
     Dosage: 40MG, 1.5 TABLETS QD
     Route: 048
     Dates: start: 20081201
  6. ACETYLSALICYLIC ACID [Concomitant]
     Dosage: 81 MG, 1X/DAY
     Dates: start: 20030717
  7. ARICEPT [Concomitant]
     Dosage: 10 MG, 1X/DAY
     Dates: start: 20081108
  8. VITAMIN B-12 [Concomitant]
     Dosage: 2 MG, MONTHLY
     Route: 030
  9. PLAVIX [Concomitant]
     Dosage: 75 MG, 1X/DAY
     Route: 048
     Dates: start: 20081109
  10. PRESERVISION SOFTGELS WITH LUTEIN [Concomitant]
     Dosage: 1 TABLET QD, 1X/DAY
     Route: 048
  11. POTASSIUM CHLORIDE [Concomitant]
     Dosage: 10 MEQ, 1X/DAY
     Route: 048
     Dates: start: 20081111, end: 20081126

REACTIONS (3)
  - CARDIAC FAILURE CONGESTIVE [None]
  - RENAL FAILURE [None]
  - URINARY TRACT INFECTION [None]
